FAERS Safety Report 5878018-1 (Version None)
Quarter: 2008Q3

REPORT INFORMATION
  Report Type: 
  Country: None (occurrence: None)
  Receive Date: 20080909
  Receipt Date: 20080909
  Transmission Date: 20090109
  Serious: Yes (Hospitalization, Other)
  Sender: FDA-Public Use
  Company Number: None

PATIENT
  Age: 68 Year
  Sex: Female
  Weight: 104 kg

DRUGS (1)
  1. BYETTA [Suspect]
     Indication: TYPE 2 DIABETES MELLITUS
     Dosage: 10 MCG BID SQ
     Route: 058
     Dates: start: 20051205, end: 20080822

REACTIONS (5)
  - ANGINA PECTORIS [None]
  - BILIARY DILATATION [None]
  - CHOLECYSTITIS CHRONIC [None]
  - LIVEDO RETICULARIS [None]
  - PANCREATITIS [None]
